FAERS Safety Report 9377344 (Version 1)
Quarter: 2013Q3

REPORT INFORMATION
  Report Type: Spontaneous
  Country: IT (occurrence: IT)
  Receive Date: 20130701
  Receipt Date: 20130701
  Transmission Date: 20140515
  Serious: Yes (Hospitalization)
  Sender: FDA-Public Use
  Company Number: IT-BAYER-2013-077427

PATIENT
  Age: 73 Year
  Sex: Male

DRUGS (10)
  1. CARDIOASPIRIN [Suspect]
     Indication: THROMBOSIS PROPHYLAXIS
     Dosage: 100 MG, QD
     Route: 048
     Dates: start: 20130101, end: 20130508
  2. PRASUGREL [Suspect]
     Indication: THROMBOSIS PROPHYLAXIS
     Dosage: UNK
     Dates: start: 20130101, end: 20130508
  3. OMNIC [Concomitant]
     Dosage: UNK
     Route: 048
  4. JANUMET [Concomitant]
     Dosage: 2 DF, QD
     Route: 048
  5. ACTOS [Concomitant]
     Dosage: UNK
     Route: 048
  6. RANIDIL [Concomitant]
     Dosage: UNK
     Route: 048
  7. AVODART [Concomitant]
     Dosage: UNK
     Route: 048
  8. LORTAAN [Concomitant]
     Dosage: UNK
     Route: 048
  9. TENORMIN [Concomitant]
     Dosage: UNK
     Route: 048
  10. GLUCOPHAGE [Concomitant]
     Dosage: UNK
     Route: 048

REACTIONS (3)
  - Coma [Unknown]
  - Intraventricular haemorrhage [Unknown]
  - Brain midline shift [Unknown]
